FAERS Safety Report 6769129-7 (Version None)
Quarter: 2010Q2

REPORT INFORMATION
  Report Type: 
  Country: None (occurrence: None)
  Receive Date: 20100615
  Receipt Date: 20100420
  Transmission Date: 20101027
  Serious: Yes (Other)
  Sender: FDA-Public Use
  Company Number: US-BAYER-200938792NA

PATIENT
  Age: 25 Year
  Sex: Female
  Weight: 64 kg

DRUGS (11)
  1. YAZ [Suspect]
     Indication: CONTRACEPTION
     Route: 048
     Dates: start: 20090126, end: 20090611
  2. SULFAMETHOXAZOLE AND TRIMETHOPRIM [Concomitant]
     Dosage: 800/160
     Route: 048
     Dates: start: 20090105
  3. HYDROCODONE BITARTRATE AND ACETAMINOPHEN [Concomitant]
     Dosage: 7.5 MG/500 MG TABS
     Dates: start: 20090105
  4. DOXYCYCLINE [Concomitant]
     Dates: start: 20090116
  5. OXYCODONE HCL AND ACETAMINOPHEN [Concomitant]
     Dosage: 5 MG/325 MG
     Dates: start: 20090109
  6. RANITIDINE [Concomitant]
     Dates: start: 20090207
  7. TRAMADOL HCL [Concomitant]
     Dates: start: 20090309
  8. CYCLOBENZAPRINE [Concomitant]
     Dates: start: 20090501
  9. AMOXICILLIN [Concomitant]
     Dates: start: 20090511
  10. TOBRAMYCIN [Concomitant]
     Route: 047
     Dates: start: 20090511
  11. CEPHALEXIN [Concomitant]
     Dates: start: 20090615

REACTIONS (3)
  - ABDOMINAL PAIN UPPER [None]
  - CHOLELITHIASIS [None]
  - NAUSEA [None]
